FAERS Safety Report 19469645 (Version 1)
Quarter: 2021Q2

REPORT INFORMATION
  Report Type: Spontaneous
  Country: ES (occurrence: ES)
  Receive Date: 20210629
  Receipt Date: 20210629
  Transmission Date: 20210717
  Serious: Yes (Hospitalization)
  Sender: FDA-Public Use
  Company Number: ES-AUROBINDO-AUR-APL-2021-026966

PATIENT

DRUGS (8)
  1. TRUXIMA [Suspect]
     Active Substance: RITUXIMAB-ABBS
     Dosage: 375 MILLIGRAM/SQ. METER (FIRST PART OF THE THIRD CYCLE)
     Route: 065
     Dates: start: 202012
  2. TRUXIMA [Suspect]
     Active Substance: RITUXIMAB-ABBS
     Indication: PRODUCT USED FOR UNKNOWN INDICATION
     Dosage: 375 MILLIGRAM/SQ. METER (SECOND CYCLE)
     Route: 065
  3. ONDANSETRON [Suspect]
     Active Substance: ONDANSETRON
     Indication: NODAL MARGINAL ZONE B-CELL LYMPHOMA STAGE IV
     Dosage: 8 MILLIGRAM
     Route: 042
  4. DEXAMETHASONE. [Suspect]
     Active Substance: DEXAMETHASONE
     Indication: NODAL MARGINAL ZONE B-CELL LYMPHOMA STAGE IV
     Dosage: 4 MILLIGRAM
     Route: 042
  5. ACETAMINOPHEN. [Suspect]
     Active Substance: ACETAMINOPHEN
     Indication: NODAL MARGINAL ZONE B-CELL LYMPHOMA STAGE IV
     Dosage: 1 GRAM
     Route: 042
  6. BENDAMUSTINE [Suspect]
     Active Substance: BENDAMUSTINE
     Indication: NODAL MARGINAL ZONE B-CELL LYMPHOMA STAGE IV
     Dosage: 90 MG/M2
     Route: 042
  7. TRUXIMA [Suspect]
     Active Substance: RITUXIMAB-ABBS
     Dosage: 375 MILLIGRAM/SQ. METER (FIRST CYCLE)
     Route: 042
     Dates: start: 202010
  8. DEXCHLORPHENIRAMINE [Suspect]
     Active Substance: DEXCHLORPHENIRAMINE
     Indication: NODAL MARGINAL ZONE B-CELL LYMPHOMA STAGE IV
     Dosage: 5 MILLIGRAM
     Route: 042

REACTIONS (1)
  - Serum sickness [Recovered/Resolved]
